FAERS Safety Report 21741241 (Version 1)
Quarter: 2022Q4

REPORT INFORMATION
  Report Type: Spontaneous
  Country: CN (occurrence: CN)
  Receive Date: 20221216
  Receipt Date: 20221216
  Transmission Date: 20230113
  Serious: Yes (Disabling)
  Sender: FDA-Public Use
  Company Number: CN-PFIZER INC-PV202200121822

PATIENT
  Age: 56 Year
  Sex: Female
  Weight: 60 kg

DRUGS (1)
  1. MEDROL [Suspect]
     Active Substance: METHYLPREDNISOLONE
     Indication: Pemphigus
     Dosage: 6 MG, DAILY (4MG IN THE MORNING + 2MG AT 15:00 IN THE AFTERNOON)
     Route: 048
     Dates: start: 20211125, end: 20221125

REACTIONS (4)
  - Weight increased [Unknown]
  - Increased appetite [Unknown]
  - Waist circumference increased [Unknown]
  - Cushingoid [Unknown]

NARRATIVE: CASE EVENT DATE: 20221125
